FAERS Safety Report 5002813-4 (Version None)
Quarter: 2006Q2

REPORT INFORMATION
  Report Type: 
  Country: None (occurrence: None)
  Receive Date: 20060516
  Receipt Date: 20060502
  Transmission Date: 20061013
  Serious: Yes (Hospitalization)
  Sender: FDA-Public Use
  Company Number: FR-AVENTIS-200611672FR

PATIENT
  Age: 71 Year
  Sex: Female

DRUGS (17)
  1. LOVENOX [Suspect]
     Route: 058
     Dates: start: 20060220
  2. GLUCOPHAGE [Suspect]
     Route: 048
     Dates: start: 20060220
  3. ORACILLINE [Suspect]
     Route: 048
     Dates: start: 20060221, end: 20060310
  4. ACETAMINOPHEN [Suspect]
     Route: 048
     Dates: start: 20060221
  5. NOROXIN [Suspect]
     Route: 048
     Dates: start: 20060314, end: 20060321
  6. PREVISCAN [Suspect]
     Route: 048
     Dates: start: 20060301, end: 20060321
  7. ADANCOR [Concomitant]
     Route: 048
  8. NEXIUM [Concomitant]
     Dates: end: 20060321
  9. MOPRAL [Concomitant]
     Dates: start: 20060321
  10. AMLOR [Concomitant]
     Route: 048
  11. ATENOLOL [Concomitant]
     Route: 048
  12. TAHOR [Concomitant]
     Route: 048
  13. CORDARONE [Concomitant]
     Route: 048
  14. FOSAMAX [Concomitant]
     Route: 048
  15. IMOVANE [Concomitant]
     Route: 048
  16. PLAVIX [Concomitant]
     Dates: start: 20060220, end: 20060308
  17. MOTILIUM [Concomitant]
     Route: 048
     Dates: start: 20060222

REACTIONS (1)
  - HAEMOLYTIC ANAEMIA [None]
